FAERS Safety Report 12231487 (Version 4)
Quarter: 2016Q4

REPORT INFORMATION
  Report Type: Report from Study
  Country: HN (occurrence: HN)
  Receive Date: 20160401
  Receipt Date: 20161121
  Transmission Date: 20170207
  Serious: Yes (Death, Hospitalization, Other)
  Sender: FDA-Public Use
  Company Number: PHHY2016HN042717

PATIENT
  Age: 53 Year
  Sex: Female
  Weight: 58.1 kg

DRUGS (1)
  1. GLIVEC [Suspect]
     Active Substance: IMATINIB MESYLATE
     Indication: GASTROINTESTINAL STROMAL TUMOUR
     Dosage: 400 MG, QD
     Route: 048
     Dates: start: 20150609, end: 201608

REACTIONS (10)
  - Death [Fatal]
  - Gene mutation [Unknown]
  - Recurrent cancer [Unknown]
  - Therapeutic response decreased [Unknown]
  - Gastrointestinal stromal tumour [Unknown]
  - Metastases to pelvis [Unknown]
  - Metastases to abdominal cavity [Unknown]
  - Thrombosis [Unknown]
  - Metastases to liver [Unknown]
  - Metastases to abdominal wall [Unknown]

NARRATIVE: CASE EVENT DATE: 20160119
